FAERS Safety Report 10048360 (Version 1)
Quarter: 2014Q1

REPORT INFORMATION
  Report Type: Spontaneous
  Country: GB (occurrence: GB)
  Receive Date: 20140331
  Receipt Date: 20140331
  Transmission Date: 20141002
  Serious: Yes (Disabling)
  Sender: FDA-Public Use
  Company Number: GB-GLAXOSMITHKLINE-B0980130A

PATIENT
  Age: 62 Year
  Sex: Female

DRUGS (2)
  1. VOTRIENT [Suspect]
     Indication: RENAL CELL CARCINOMA
     Dosage: 800MG PER DAY
     Route: 048
     Dates: start: 20130228, end: 20131224
  2. CO-CODAMOL [Concomitant]
     Indication: PAIN
     Dosage: 8IUAX PER DAY
     Route: 048

REACTIONS (2)
  - Periorbital oedema [Not Recovered/Not Resolved]
  - Blood pressure increased [Recovered/Resolved]
